FAERS Safety Report 18861380 (Version 1)
Quarter: 2021Q1

REPORT INFORMATION
  Report Type: Report from Study
  Country: US (occurrence: US)
  Receive Date: 20210208
  Receipt Date: 20210208
  Transmission Date: 20210420
  Serious: No
  Sender: FDA-Public Use
  Company Number: NVSC2021US021337

PATIENT
  Sex: Female

DRUGS (1)
  1. PIQRAY [Suspect]
     Active Substance: ALPELISIB
     Indication: PRODUCT USED FOR UNKNOWN INDICATION
     Dosage: UNK (ALTERNATING DAY WITH 1 AND 2 PIILS)
     Route: 048

REACTIONS (6)
  - Arthritis [Unknown]
  - Cough [Unknown]
  - Alopecia [Unknown]
  - Stomatitis [Unknown]
  - Pain [Unknown]
  - Diarrhoea [Unknown]
